FAERS Safety Report 4614715-3 (Version None)
Quarter: 2005Q1

REPORT INFORMATION
  Report Type: 
  Country: None (occurrence: None)
  Receive Date: 20050322
  Receipt Date: 20050308
  Transmission Date: 20050727
  Serious: Yes (Hospitalization)
  Sender: FDA-Public Use
  Company Number: JP-JNJFOC-20040904706

PATIENT
  Sex: Female
  Weight: 56.1 kg

DRUGS (15)
  1. REMICADE [Suspect]
     Route: 042
  2. REMICADE [Suspect]
     Indication: RHEUMATOID ARTHRITIS
     Route: 042
  3. METHOTREXATE [Suspect]
     Dosage: WEDNESDAYS
     Route: 049
  4. METHOTREXATE [Suspect]
     Dosage: TUESDAYS
     Route: 049
  5. METHOTREXATE [Suspect]
     Route: 049
  6. METHOTREXATE [Suspect]
     Indication: RHEUMATOID ARTHRITIS
     Route: 049
  7. BACTRAMIN [Suspect]
     Route: 049
  8. BACTRAMIN [Suspect]
     Indication: PNEUMOCYSTIS JIROVECI PNEUMONIA
     Dosage: 12 T DAILY
     Route: 049
  9. RIMATIL [Concomitant]
     Indication: RHEUMATOID ARTHRITIS
     Route: 049
  10. FOLIAMIN [Concomitant]
     Indication: PROPHYLAXIS
     Dosage: FRIDAYS
     Route: 049
  11. ISCOTIN [Concomitant]
     Indication: TUBERCULOSIS PROPHYLAXIS
     Route: 049
  12. PYDOXAL [Concomitant]
     Indication: PROPHYLAXIS
     Route: 049
  13. RANITIDINE HCL [Concomitant]
     Indication: PROPHYLAXIS
     Route: 049
  14. GASTROZEPIN [Concomitant]
     Indication: PROPHYLAXIS
     Route: 049
  15. UBEQUINON [Concomitant]

REACTIONS (3)
  - NAUSEA [None]
  - PNEUMOCYSTIS JIROVECI INFECTION [None]
  - VOMITING [None]
